FAERS Safety Report 7676896-7 (Version None)
Quarter: 2011Q3

REPORT INFORMATION
  Report Type: 
  Country: None (occurrence: None)
  Receive Date: 20110810
  Receipt Date: 20110810
  Transmission Date: 20111222
  Serious: Yes (Hospitalization)
  Sender: FDA-Public Use
  Company Number: None

PATIENT
  Sex: Female
  Weight: 89 kg

DRUGS (3)
  1. FLUOROURACIL [Suspect]
     Dosage: 7720MG
  2. CISPLATIN [Suspect]
     Dosage: 145MG
  3. ERBITUX [Suspect]
     Dosage: 483MG

REACTIONS (4)
  - BLOOD CREATININE INCREASED [None]
  - FEEDING DISORDER [None]
  - PROCTALGIA [None]
  - RADIATION SKIN INJURY [None]
